FAERS Safety Report 11848984 (Version 12)
Quarter: 2017Q2

REPORT INFORMATION
  Report Type: Report from Study
  Country: CO (occurrence: CO)
  Receive Date: 20151218
  Receipt Date: 20170516
  Transmission Date: 20170829
  Serious: Yes (Death, Hospitalization, Other)
  Sender: FDA-Public Use
  Company Number: PHHY2015CO165531

PATIENT
  Age: 83 Year
  Sex: Male
  Weight: 49 kg

DRUGS (9)
  1. FLAGYL [Concomitant]
     Active Substance: METRONIDAZOLE\METRONIDAZOLE HYDROCHLORIDE
     Indication: PRODUCT USED FOR UNKNOWN INDICATION
     Dosage: UNK
     Route: 065
  2. VITAMIN B12 [Concomitant]
     Active Substance: CYANOCOBALAMIN
     Indication: PRODUCT USED FOR UNKNOWN INDICATION
     Route: 065
  3. FOLIC ACID. [Concomitant]
     Active Substance: FOLIC ACID
     Indication: PRODUCT USED FOR UNKNOWN INDICATION
     Dosage: 2 TABLETS IN THE MORNING
     Route: 065
  4. EXJADE [Suspect]
     Active Substance: DEFERASIROX
     Indication: IRON DEFICIENCY ANAEMIA
     Dosage: 15 MG/KG, BID EVERY 12 HOURS (500 MG TWICE A DAY) 1 TABLET EVERY 12 HOURS
     Route: 048
     Dates: start: 20110101
  5. EXJADE [Suspect]
     Active Substance: DEFERASIROX
     Indication: ANAEMIA
  6. REVOLADE [Suspect]
     Active Substance: ELTROMBOPAG
     Indication: IMMUNE SYSTEM DISORDER
  7. REVOLADE [Suspect]
     Active Substance: ELTROMBOPAG
     Indication: PLATELET COUNT DECREASED
     Dosage: 25 MG, BID (1 TABLET 12 HOURLY)
     Route: 048
     Dates: start: 20151101
  8. VITAMIN B COMPLEX [Concomitant]
     Active Substance: CYANOCOBALAMIN\DEXPANTHENOL\NIACINAMIDE\PYRIDOXINE HYDROCHLORIDE\RIBOFLAVIN 5^-PHOSPHATE SODIUM\THIAMINE HYDROCHLORIDE\VITAMIN B COMPLEX
     Indication: PRODUCT USED FOR UNKNOWN INDICATION
     Route: 065
  9. DANAZOL. [Concomitant]
     Active Substance: DANAZOL
     Indication: PRODUCT USED FOR UNKNOWN INDICATION
     Route: 065

REACTIONS (23)
  - Cardiac arrest [Fatal]
  - Fall [Recovered/Resolved]
  - Haematoma [Recovered/Resolved]
  - Catheter site haemorrhage [Unknown]
  - Blood urine present [Unknown]
  - Haemoglobin decreased [Unknown]
  - Depressed mood [Unknown]
  - Inappropriate schedule of drug administration [Unknown]
  - Pneumonia [Recovering/Resolving]
  - Platelet count decreased [Unknown]
  - Decreased appetite [Recovering/Resolving]
  - Urinary tract infection [Recovering/Resolving]
  - Joint injury [Unknown]
  - Malaise [Unknown]
  - Feeding disorder [Recovering/Resolving]
  - Peripheral swelling [Not Recovered/Not Resolved]
  - Urethral obstruction [Unknown]
  - Asthenia [Unknown]
  - Head injury [Unknown]
  - Limb injury [Unknown]
  - Haematoma [Not Recovered/Not Resolved]
  - Urinary retention [Unknown]
  - Off label use [Unknown]

NARRATIVE: CASE EVENT DATE: 20160417
